FAERS Safety Report 6135681-8 (Version None)
Quarter: 2009Q1

REPORT INFORMATION
  Report Type: 
  Country: None (occurrence: None)
  Receive Date: 20090327
  Receipt Date: 20090317
  Transmission Date: 20090719
  Serious: Yes (Hospitalization)
  Sender: FDA-Public Use
  Company Number: TR-ELI_LILLY_AND_COMPANY-TR200903006543

PATIENT
  Age: 63 Year
  Sex: Male

DRUGS (2)
  1. HUMALOG MIX 75/25 [Suspect]
     Indication: TYPE 2 DIABETES MELLITUS
     Dosage: 24 IU, EACH MORNING
     Route: 058
     Dates: start: 20070810
  2. HUMALOG MIX 75/25 [Suspect]
     Dosage: 14 IU, EACH EVENING
     Route: 058
     Dates: start: 20070810

REACTIONS (1)
  - LUNG INFECTION [None]
